FAERS Safety Report 7216131-7 (Version None)
Quarter: 2011Q1

REPORT INFORMATION
  Report Type: 
  Country: None (occurrence: None)
  Receive Date: 20110105
  Receipt Date: 20110105
  Transmission Date: 20110831
  Serious: Yes (Other)
  Sender: FDA-Public Use
  Company Number: None

PATIENT
  Sex: Female
  Weight: 36.1 kg

DRUGS (3)
  1. LUPRON-DEPOT PED 11.25 MG TAP [Suspect]
     Indication: PRECOCIOUS PUBERTY
     Dosage: 11.25 Q MONTH IM
     Route: 030
     Dates: start: 20100801
  2. LUPRON-DEPOT PED 11.25 MG TAP [Suspect]
     Indication: PRECOCIOUS PUBERTY
     Dosage: 11.25 Q MONTH IM
     Route: 030
     Dates: start: 20100901
  3. LUPRON-DEPOT PED 11.25 MG TAP [Suspect]
     Indication: PRECOCIOUS PUBERTY
     Dosage: 11.25 Q MONTH IM
     Route: 030
     Dates: start: 20100701

REACTIONS (1)
  - INJECTION SITE CELLULITIS [None]
